FAERS Safety Report 20007502 (Version 7)
Quarter: 2022Q2

REPORT INFORMATION
  Report Type: Spontaneous
  Country: IN (occurrence: IN)
  Receive Date: 20211028
  Receipt Date: 20220421
  Transmission Date: 20220721
  Serious: Yes (Hospitalization)
  Sender: FDA-Public Use
  Company Number: IN-PFIZER INC-2021219064

PATIENT
  Age: 58 Year
  Sex: Female

DRUGS (7)
  1. PALBOCICLIB [Suspect]
     Active Substance: PALBOCICLIB
     Indication: Breast cancer metastatic
     Dosage: 125 MG, CYCLIC (1X/DAY, 21 DAYS ON, 7 DAYS OFF)
     Route: 048
     Dates: start: 20200511, end: 20200512
  2. PALBOCICLIB [Suspect]
     Active Substance: PALBOCICLIB
     Dosage: 125 MG, 1X/DAY
     Route: 048
     Dates: start: 20200513
  3. PALBOCICLIB [Suspect]
     Active Substance: PALBOCICLIB
     Dosage: 125 MG, 1X/DAY
     Route: 048
     Dates: start: 20210714
  4. LETROZOLE [Concomitant]
     Active Substance: LETROZOLE
     Dosage: 2.5 MG, 1X/DAY IN THE MORNING
     Dates: start: 20200514
  5. BECOZINC [ASCORBIC ACID;CALCIUM PANTOTHENATE;FOLIC ACID;NICOTINAMIDE;P [Concomitant]
     Dosage: UNK UNK, 2X/DAY (1-0-1, 28 DAYS)
  6. GEMCAL D3 [Concomitant]
     Dosage: UNK, 1X/DAY (1-0-0, 28 DAYS)
  7. DOLO 650 [Concomitant]
     Indication: Pain
     Dosage: 650 MG, AS NEEDED (1-0-1 SOS)

REACTIONS (9)
  - Blood pressure systolic increased [Unknown]
  - Haemoglobin abnormal [Unknown]
  - White blood cell count abnormal [Unknown]
  - Blood creatinine abnormal [Unknown]
  - Blood pressure increased [Unknown]
  - Pain [Unknown]
  - Back pain [Unknown]
  - Arthralgia [Unknown]
  - Off label use [Unknown]

NARRATIVE: CASE EVENT DATE: 20211016
